FAERS Safety Report 10244467 (Version 1)
Quarter: 2014Q2

REPORT INFORMATION
  Report Type: Spontaneous
  Country: US (occurrence: None)
  Receive Date: 20140613
  Receipt Date: 20140613
  Transmission Date: 20141212
  Serious: Yes (Hospitalization)
  Sender: FDA-Public Use
  Company Number: DL2014-0501

PATIENT
  Age: 32 Year
  Sex: Female

DRUGS (3)
  1. MIFEPRISTONE [Suspect]
     Indication: ABORTION INDUCED
     Route: 048
     Dates: start: 20140418
  2. MISOPROSTOL [Suspect]
     Dosage: 800 MCG, BUCCAL
     Route: 002
     Dates: start: 20140419
  3. AZITHROMYCIN [Concomitant]

REACTIONS (4)
  - Pyrexia [None]
  - Uterine disorder [None]
  - Uterine perforation [None]
  - Post procedural complication [None]
